FAERS Safety Report 5970951-5 (Version None)
Quarter: 2008Q4

REPORT INFORMATION
  Report Type: 
  Country: None (occurrence: None)
  Receive Date: 20081128
  Receipt Date: 20081119
  Transmission Date: 20090506
  Serious: Yes (Hospitalization)
  Sender: FDA-Public Use
  Company Number: PHHY2008JP29176

PATIENT
  Sex: Male

DRUGS (16)
  1. SIMULECT SIC+VIAL+KT [Suspect]
     Indication: RENAL TRANSPLANT
     Dosage: 20 MG, UNK
     Route: 042
     Dates: start: 20080219, end: 20080219
  2. SIMULECT SIC+VIAL+KT [Suspect]
     Dosage: 20 MG, UNK
     Route: 042
     Dates: start: 20080223, end: 20080223
  3. PROGRAF [Suspect]
     Indication: RENAL TRANSPLANT
     Dosage: 5 MG, UNK
     Route: 048
     Dates: start: 20080206, end: 20080208
  4. PROGRAF [Suspect]
     Dosage: 8 MG, UNK
     Route: 048
     Dates: start: 20080209, end: 20080218
  5. PROGRAF [Suspect]
     Dosage: 1.8 MG, UNK
     Route: 042
     Dates: start: 20080219, end: 20080221
  6. PROGRAF [Suspect]
     Dosage: 12 MG, UNK
     Route: 048
     Dates: start: 20080222
  7. CELLCEPT [Suspect]
     Indication: RENAL TRANSPLANT
     Dosage: 1000 MG, UNK
     Route: 048
     Dates: start: 20080206, end: 20080218
  8. CELLCEPT [Suspect]
     Dosage: 1000 MG, UNK
     Route: 048
     Dates: start: 20080221, end: 20080615
  9. CELLCEPT [Suspect]
     Dosage: 500 MG, UNK
     Route: 048
     Dates: start: 20080616
  10. MEDROL [Suspect]
     Indication: RENAL TRANSPLANT
     Dosage: 40 MG, UNK
     Route: 048
     Dates: start: 20080223
  11. MEDROL [Suspect]
     Dosage: 6 MG, UNK
     Route: 048
     Dates: start: 20080508
  12. RITUXAN [Concomitant]
     Indication: RENAL TRANSPLANT
     Dosage: 500 MG, UNK
     Route: 042
     Dates: start: 20080205
  13. RITUXAN [Concomitant]
     Dosage: 100 MG, UNK
     Route: 042
     Dates: end: 20080219
  14. SOLU-MEDROL [Concomitant]
     Indication: RENAL TRANSPLANT
     Dosage: 250 MG, UNK
     Route: 042
     Dates: start: 20080219
  15. SOLU-MEDROL [Concomitant]
     Dosage: 125 MG, UNK
     Route: 042
  16. SOLU-MEDROL [Concomitant]
     Dosage: 60 MG, UNK
     Route: 042

REACTIONS (5)
  - BIOPSY KIDNEY ABNORMAL [None]
  - BLOOD CREATININE INCREASED [None]
  - KIDNEY TRANSPLANT REJECTION [None]
  - POLYOMAVIRUS-ASSOCIATED NEPHROPATHY [None]
  - URINE CYTOLOGY ABNORMAL [None]
